FAERS Safety Report 7093461-3 (Version None)
Quarter: 2010Q4

REPORT INFORMATION
  Report Type: 
  Country: None (occurrence: None)
  Receive Date: 20101102
  Receipt Date: 20101020
  Transmission Date: 20110411
  Serious: Yes (Hospitalization)
  Sender: FDA-Public Use
  Company Number: JPI-P-012663

PATIENT
  Age: 38 Year
  Sex: Male

DRUGS (15)
  1. XYREM [Suspect]
     Indication: FIBROMYALGIA
     Dosage: ORAL, 13.5 GM (4.5 GM, 3 IN 1 D), ORAL
     Route: 048
     Dates: start: 20070801
  2. XYREM [Suspect]
     Indication: NARCOLEPSY
     Dosage: ORAL, 13.5 GM (4.5 GM, 3 IN 1 D), ORAL
     Route: 048
     Dates: start: 20070801
  3. TRAMADOL HCL [Concomitant]
  4. DEXTROAMPHETAMINE AND AMPHETAMINE [Concomitant]
  5. TESTOSTERONE [Concomitant]
  6. DIVALPROEX SODIUM [Concomitant]
  7. LEVOTHYROXINE SODIUM [Concomitant]
  8. AMLODIPINE BESYLATE AND BENAZEPRIL HYDROCHLORIDE [Concomitant]
  9. PANTOPRAZOLE [Concomitant]
  10. QUETIAPINE FUMARATE [Concomitant]
  11. CLONAZEPAM [Concomitant]
  12. MILNACIPRAN [Concomitant]
  13. UNSPECIFIED NASAL SPRAY [Concomitant]
  14. UNSPECIFIED MEDICATION FOR HIGH CHOLESTEROL [Concomitant]
  15. PREGABALIN [Concomitant]

REACTIONS (4)
  - ABDOMINAL DISTENSION [None]
  - FLATULENCE [None]
  - SMALL INTESTINAL OBSTRUCTION [None]
  - WEIGHT DECREASED [None]
